FAERS Safety Report 9128055 (Version 1)
Quarter: 2013Q1

REPORT INFORMATION
  Report Type: Spontaneous
  Country: GB (occurrence: GB)
  Receive Date: 20130228
  Receipt Date: 20130228
  Transmission Date: 20140127
  Serious: Yes (Other)
  Sender: FDA-Public Use
  Company Number: GB-JNJFOC-20130212253

PATIENT
  Sex: Female

DRUGS (9)
  1. DOXORUBICIN [Suspect]
     Indication: PALLIATIVE CARE
     Dosage: ADMINISTERTED OVER 2 DAYS FOR 14 DAY CYCLE, TOTAL 14 CYCLES
     Route: 042
  2. VINCRISTINE [Suspect]
     Indication: EWING^S SARCOMA
     Dosage: 1.4 MG/M2, MAXIMUN 2 MG,
     Route: 065
  3. VINCRISTINE [Suspect]
     Indication: EWING^S SARCOMA
     Dosage: 50% REDUCTION AT CYCLE 3, TOTAL 14 CYCLES
     Route: 065
  4. CYCLOPHOSPHAMIDE [Suspect]
     Indication: EWING^S SARCOMA
     Dosage: OVER 2 DAYS OF 14 DAY CYCLE, TOTAL 14 CYCLES
     Route: 065
  5. IFOSFAMIDE [Suspect]
     Indication: EWING^S SARCOMA
     Dosage: FRACTIONATED OVER 5 DAYS. 20% OF DOSE REDUCTION AT CYCLE 8 AND ADDITIONAL 20% AT CYCLE 12.
     Route: 065
  6. IFOSFAMIDE [Suspect]
     Indication: EWING^S SARCOMA
     Dosage: FRACTIONATED OVER 5 DAYS.
     Route: 065
  7. ETOPOSIDE [Suspect]
     Indication: EWING^S SARCOMA
     Dosage: FRACTIONATED OVER 5 DAYS. 20% OF DOSE REDUCTION AT CYCLE 8 AND ADDITIONAL 20% AT CYCLE 12.
     Route: 065
  8. ETOPOSIDE [Suspect]
     Indication: EWING^S SARCOMA
     Dosage: FRACTIONATED OVER 5 DAYS.
     Route: 065
  9. GRANULOCYTE COLONY-STIMULATING FACTOR (GCSF) [Concomitant]
     Route: 065

REACTIONS (6)
  - Bone marrow toxicity [Not Recovered/Not Resolved]
  - Thrombocytopenia [Unknown]
  - Anaemia [Unknown]
  - Neuropathy peripheral [Recovered/Resolved]
  - Mucosal inflammation [Unknown]
  - Off label use [Unknown]
